FAERS Safety Report 8103180-X (Version None)
Quarter: 2012Q1

REPORT INFORMATION
  Report Type: 
  Country: None (occurrence: None)
  Receive Date: 20120201
  Receipt Date: 20120131
  Transmission Date: 20120608
  Serious: Yes (Other)
  Sender: FDA-Public Use
  Company Number: US-TEVA-313254USA

PATIENT
  Sex: Male

DRUGS (1)
  1. CLARAVIS [Suspect]
     Dosage: 60 MILLIGRAM;
     Route: 048
     Dates: end: 20111210

REACTIONS (5)
  - DECREASED APPETITE [None]
  - PSYCHIATRIC SYMPTOM [None]
  - FEELING ABNORMAL [None]
  - SELF-INJURIOUS IDEATION [None]
  - ABNORMAL BEHAVIOUR [None]
